FAERS Safety Report 22394870 (Version 8)
Quarter: 2024Q4

REPORT INFORMATION
  Report Type: Spontaneous
  Country: FR (occurrence: FR)
  Receive Date: 20230601
  Receipt Date: 20241009
  Transmission Date: 20250114
  Serious: Yes (Other)
  Sender: JOHNSON AND JOHNSON
  Company Number: FR-JNJFOC-20230563661

PATIENT
  Sex: Female

DRUGS (22)
  1. SIMPONI [Suspect]
     Active Substance: GOLIMUMAB
     Indication: Spondylitis
     Route: 058
     Dates: start: 20160204, end: 20160427
  2. STELARA [Suspect]
     Active Substance: USTEKINUMAB
     Indication: Product used for unknown indication
     Route: 058
     Dates: start: 20180806, end: 20181121
  3. STELARA [Suspect]
     Active Substance: USTEKINUMAB
     Route: 058
     Dates: start: 20181017, end: 202107
  4. CIMZIA [Suspect]
     Active Substance: CERTOLIZUMAB PEGOL
     Indication: Product used for unknown indication
     Route: 065
     Dates: start: 20150827
  5. CIMZIA [Suspect]
     Active Substance: CERTOLIZUMAB PEGOL
     Dates: start: 20151126, end: 20160204
  6. CIMZIA [Suspect]
     Active Substance: CERTOLIZUMAB PEGOL
     Dates: start: 20160427
  7. CIMZIA [Suspect]
     Active Substance: CERTOLIZUMAB PEGOL
     Dates: start: 20160803
  8. CIMZIA [Suspect]
     Active Substance: CERTOLIZUMAB PEGOL
     Dates: start: 20170104, end: 20170214
  9. CIMZIA [Suspect]
     Active Substance: CERTOLIZUMAB PEGOL
     Dates: start: 20190104
  10. CIMZIA [Suspect]
     Active Substance: CERTOLIZUMAB PEGOL
     Dates: start: 20190409
  11. CIMZIA [Suspect]
     Active Substance: CERTOLIZUMAB PEGOL
     Dates: start: 20190701, end: 2021
  12. NAPROXEN [Concomitant]
     Active Substance: NAPROXEN
     Dosage: 1 TO 2 SUPPOSITORIES PER DAY
  13. ACETAMINOPHEN\OPIUM [Concomitant]
     Active Substance: ACETAMINOPHEN\OPIUM
     Dosage: UP TO 6 CAPSULES PER DAY IN SPACED DOSES
     Dates: start: 20160204
  14. METHOTREXATE [Concomitant]
     Active Substance: METHOTREXATE
     Dates: start: 20160803, end: 20161011
  15. FOLIC ACID [Concomitant]
     Active Substance: FOLIC ACID
     Dosage: 5
     Dates: start: 20160803
  16. NIFLURIL [NIFLUMIC ACID] [Concomitant]
     Dates: start: 20160803
  17. DAFALGAN CODEINE [Concomitant]
     Active Substance: ACETAMINOPHEN\CODEINE PHOSPHATE
     Dates: start: 20160803
  18. HYDROCORTISONE [Concomitant]
     Active Substance: HYDROCORTISONE
     Route: 065
  19. HYDROCORTISONE [Concomitant]
     Active Substance: HYDROCORTISONE
     Route: 065
  20. HYDROCORTISONE [Concomitant]
     Active Substance: HYDROCORTISONE
     Route: 065
  21. PREDNISONE [Concomitant]
     Active Substance: PREDNISONE
  22. PREDNISONE [Concomitant]
     Active Substance: PREDNISONE

REACTIONS (11)
  - Psoriatic arthropathy [Unknown]
  - Scleroderma [Unknown]
  - Adrenal insufficiency [Unknown]
  - Spinal fusion surgery [Unknown]
  - Sciatica [Unknown]
  - Loss of therapeutic response [Unknown]
  - Normocytic anaemia [Unknown]
  - Antinuclear antibody positive [Unknown]
  - Sick leave [Unknown]
  - Sacroiliitis [Unknown]
  - Post-acute COVID-19 syndrome [Unknown]

NARRATIVE: CASE EVENT DATE: 20190101
